FAERS Safety Report 20790400 (Version 2)
Quarter: 2022Q2

REPORT INFORMATION
  Report Type: Spontaneous
  Country: JP (occurrence: JP)
  Receive Date: 20220505
  Receipt Date: 20220516
  Transmission Date: 20220721
  Serious: Yes (Other)
  Sender: FDA-Public Use
  Company Number: JP-MACLEODS PHARMACEUTICALS US LTD-MAC2022035431

PATIENT

DRUGS (1)
  1. ACYCLOVIR [Suspect]
     Active Substance: ACYCLOVIR
     Indication: Varicella zoster virus infection
     Dosage: 2.5 MILLIGRAM/KILOGRAM, QD(200 MG STRENGTH) START DATE 22 OCT
     Route: 042

REACTIONS (1)
  - Toxic encephalopathy [Recovered/Resolved]
